FAERS Safety Report 10909890 (Version 1)
Quarter: 2015Q1

REPORT INFORMATION
  Report Type: Spontaneous
  Country: US (occurrence: US)
  Receive Date: 20150312
  Receipt Date: 20150312
  Transmission Date: 20150721
  Serious: No
  Sender: FDA-Public Use
  Company Number: US-SA-2014SA132890

PATIENT
  Age: 14 Year
  Sex: Male

DRUGS (1)
  1. NASACORT ALLERGY 24HR [Suspect]
     Active Substance: TRIAMCINOLONE ACETONIDE
     Dosage: SPRAYED 6 SPRAYS INTO ONE NOSTRIL AND 2 IN THE OTHER TODAY
     Route: 045
     Dates: start: 20140922

REACTIONS (1)
  - Extra dose administered [Unknown]
